FAERS Safety Report 21842996 (Version 3)
Quarter: 2023Q1

REPORT INFORMATION
  Report Type: Spontaneous
  Country: MX (occurrence: MX)
  Receive Date: 20230110
  Receipt Date: 20230217
  Transmission Date: 20230417
  Serious: No
  Sender: FDA-Public Use
  Company Number: MX-PFIZER INC-PV202300002579

PATIENT
  Sex: Male

DRUGS (1)
  1. GENOTROPIN [Suspect]
     Active Substance: SOMATROPIN
     Dosage: UNK
     Route: 058

REACTIONS (2)
  - Wrong technique in device usage process [Unknown]
  - Device issue [Unknown]

NARRATIVE: CASE EVENT DATE: 20230103
